FAERS Safety Report 24647114 (Version 1)
Quarter: 2024Q4

REPORT INFORMATION
  Report Type: Spontaneous
  Country: ES (occurrence: ES)
  Receive Date: 20241121
  Receipt Date: 20241121
  Transmission Date: 20250114
  Serious: Yes (Other)
  Sender: SANDOZ
  Company Number: ES-AMGEN-ESPSP2023073318

PATIENT
  Age: 71 Year
  Sex: Male

DRUGS (1)
  1. ADALIMUMAB [Suspect]
     Active Substance: ADALIMUMAB
     Indication: Psoriasis
     Dosage: 40 MILLIGRAM, Q4WK
     Route: 065

REACTIONS (3)
  - Neoplasm progression [Unknown]
  - Bladder cancer [Unknown]
  - Bladder neoplasm [Unknown]
